FAERS Safety Report 18414601 (Version 3)
Quarter: 2021Q1

REPORT INFORMATION
  Report Type: Spontaneous
  Country: JP (occurrence: JP)
  Receive Date: 20201022
  Receipt Date: 20210212
  Transmission Date: 20210419
  Serious: Yes (Other)
  Sender: FDA-Public Use
  Company Number: JP-SUNOVION-2020DSP013072

PATIENT
  Age: 64 Year
  Sex: Male
  Weight: 49.6 kg

DRUGS (12)
  1. ACTIT [Concomitant]
     Indication: DEHYDRATION
     Dosage: 500 ML, TID
     Route: 041
     Dates: start: 20200612, end: 20200626
  2. AMITIZA [Concomitant]
     Active Substance: LUBIPROSTONE
     Indication: CONSTIPATION
     Dosage: 24 ?G, BID
     Route: 048
     Dates: start: 20200706
  3. ASCORBIC ACID. [Concomitant]
     Active Substance: ASCORBIC ACID
     Indication: NUTRITIONAL SUPPLEMENTATION
     Dosage: 1000 MG, QD
     Route: 041
     Dates: start: 20200612, end: 20200626
  4. CRAVIT [Concomitant]
     Active Substance: LEVOFLOXACIN
     Indication: KERATITIS
     Dosage: UNK, QD
     Route: 047
     Dates: start: 20200623
  5. ANHIBA [Concomitant]
     Active Substance: ACETAMINOPHEN
     Indication: UPPER RESPIRATORY TRACT INFLAMMATION
     Dosage: 200 MG, SINGLE
     Route: 054
     Dates: start: 20200621, end: 20200621
  6. LATUDA [Suspect]
     Active Substance: LURASIDONE HYDROCHLORIDE
     Indication: SCHIZOPHRENIA
     Dosage: 40 MG, QD
     Route: 048
     Dates: start: 20200612, end: 20200614
  7. LONASEN [Suspect]
     Active Substance: BLONANSERIN
     Indication: SCHIZOPHRENIA
     Dosage: 80 MG, QD
     Route: 062
     Dates: start: 20200614
  8. VITAMEDIN INTRAVENOUS [Concomitant]
     Active Substance: CYANOCOBALAMIN\PYRIDOXINE HYDROCHLORIDE\THIAMINE
     Indication: NUTRITIONAL SUPPLEMENTATION
     Dosage: UNK, QD
     Route: 041
     Dates: start: 20200612, end: 20200626
  9. LATUDA [Suspect]
     Active Substance: LURASIDONE HYDROCHLORIDE
     Dosage: 80 MG, QD
     Route: 048
     Dates: start: 20200715
  10. LACTEC G [Concomitant]
     Active Substance: CALCIUM CHLORIDE\POTASSIUM CHLORIDE\SODIUM CHLORIDE\SODIUM LACTATE\SORBITOL
     Indication: DEHYDRATION
     Dosage: 500 ML, QD
     Route: 041
     Dates: start: 20200612, end: 20200626
  11. BORRAZA?G [Concomitant]
     Active Substance: LIDOCAINE\TRIBENOSIDE
     Indication: HAEMORRHOIDS
     Dosage: 2.4 MG
     Route: 003
     Dates: start: 20200625
  12. AMOBAN [Concomitant]
     Active Substance: ZOPICLONE
     Indication: SCHIZOPHRENIA
     Dosage: 10 MG, BIW
     Route: 048
     Dates: start: 20200613

REACTIONS (2)
  - Constipation [Not Recovered/Not Resolved]
  - Urinary retention [Recovered/Resolved]

NARRATIVE: CASE EVENT DATE: 20200705
